FAERS Safety Report 5260080-0 (Version None)
Quarter: 2007Q1

REPORT INFORMATION
  Report Type: 
  Country: None (occurrence: None)
  Receive Date: 20070309
  Receipt Date: 20060303
  Transmission Date: 20070707
  Serious: No
  Sender: FDA-Public Use
  Company Number: US-GLAXOSMITHKLINE-A0595861A

PATIENT
  Age: 36 Year
  Sex: Male

DRUGS (1)
  1. EQUATE NICOTINE GUM 2MG [Suspect]
     Dates: start: 20060301, end: 20060301

REACTIONS (1)
  - THROAT IRRITATION [None]
